FAERS Safety Report 24168804 (Version 1)
Quarter: 2024Q3

REPORT INFORMATION
  Report Type: Spontaneous
  Country: CA (occurrence: CA)
  Receive Date: 20240802
  Receipt Date: 20240802
  Transmission Date: 20241016
  Serious: Yes (Other)
  Sender: DAIICHI
  Company Number: CA-AstraZeneca-2024A170083

PATIENT
  Sex: Female

DRUGS (1)
  1. TRASTUZUMAB DERUXTECAN [Suspect]
     Active Substance: TRASTUZUMAB DERUXTECAN
     Indication: HER2 positive breast cancer
     Dosage: 340 MG, ONCE EVERY 3 WK
     Route: 042

REACTIONS (17)
  - Blood albumin decreased [Unknown]
  - Blood chloride increased [Unknown]
  - Blood lactate dehydrogenase increased [Unknown]
  - Blood potassium decreased [Unknown]
  - Blood uric acid decreased [Unknown]
  - Blood urine present [Unknown]
  - Carbon dioxide decreased [Unknown]
  - Haematocrit decreased [Unknown]
  - Haemoglobin decreased [Unknown]
  - Lymphocyte count decreased [Unknown]
  - Proteinuria [Unknown]
  - Red blood cell count decreased [Unknown]
  - Red cell distribution width increased [Unknown]
  - White blood cell count decreased [Unknown]
  - White blood cells urine positive [Unknown]
  - Neutrophil count decreased [Unknown]
  - Platelet count decreased [Unknown]
